FAERS Safety Report 19667272 (Version 2)
Quarter: 2022Q1

REPORT INFORMATION
  Report Type: Spontaneous
  Country: US (occurrence: None)
  Receive Date: 20210806
  Receipt Date: 20220329
  Transmission Date: 20220423
  Serious: Yes (Other)
  Sender: FDA-Public Use
  Company Number: 2021A659918

PATIENT
  Age: 70 Year
  Sex: Female
  Weight: 117 kg

DRUGS (50)
  1. NEXIUM [Suspect]
     Active Substance: ESOMEPRAZOLE MAGNESIUM
     Indication: Gastrooesophageal reflux disease
     Route: 048
     Dates: start: 2008, end: 2018
  2. NEXIUM [Suspect]
     Active Substance: ESOMEPRAZOLE MAGNESIUM
     Indication: Gastrooesophageal reflux disease
     Route: 048
     Dates: start: 2008, end: 2018
  3. NEXIUM [Suspect]
     Active Substance: ESOMEPRAZOLE MAGNESIUM
     Indication: Gastrooesophageal reflux disease
     Dosage: GENERIC
     Route: 048
     Dates: start: 2014, end: 2017
  4. PRILOSEC [Suspect]
     Active Substance: OMEPRAZOLE MAGNESIUM
     Indication: Gastrooesophageal reflux disease
     Route: 048
     Dates: start: 2008, end: 2018
  5. PRILOSEC [Suspect]
     Active Substance: OMEPRAZOLE MAGNESIUM
     Indication: Gastrooesophageal reflux disease
     Route: 048
     Dates: start: 2008, end: 2021
  6. PRILOSEC [Suspect]
     Active Substance: OMEPRAZOLE MAGNESIUM
     Indication: Gastrooesophageal reflux disease
     Dosage: GENERIC
     Route: 048
     Dates: start: 2013
  7. PREVACID [Suspect]
     Active Substance: LANSOPRAZOLE
     Indication: Gastrooesophageal reflux disease
     Route: 048
     Dates: start: 2008, end: 2018
  8. PREVACID [Suspect]
     Active Substance: LANSOPRAZOLE
     Indication: Gastrooesophageal reflux disease
     Route: 048
     Dates: start: 2008, end: 2018
  9. PREVACID [Suspect]
     Active Substance: LANSOPRAZOLE
     Indication: Gastrooesophageal reflux disease
     Dosage: GENERIC
     Route: 048
     Dates: start: 2017
  10. PROTONIX [Suspect]
     Active Substance: PANTOPRAZOLE SODIUM
     Indication: Gastrooesophageal reflux disease
     Route: 048
     Dates: start: 2009, end: 2021
  11. PROTONIX [Suspect]
     Active Substance: PANTOPRAZOLE SODIUM
     Indication: Gastrooesophageal reflux disease
     Dosage: GENERIC
     Route: 048
     Dates: start: 2014
  12. LISINOPRIL [Concomitant]
     Active Substance: LISINOPRIL
     Indication: Hypertension
  13. CLOPIDOGREL [Concomitant]
     Active Substance: CLOPIDOGREL BISULFATE
     Indication: Cardiac disorder
  14. ATORVASTATIN [Concomitant]
     Active Substance: ATORVASTATIN
     Indication: Blood cholesterol
  15. ALLOPURINOL [Concomitant]
     Active Substance: ALLOPURINOL
     Indication: Gout
  16. LOSARTAN [Concomitant]
     Active Substance: LOSARTAN
     Indication: Hypertension
  17. FUROSEMIDE [Concomitant]
     Active Substance: FUROSEMIDE
     Indication: Hypertension
  18. ACETAMINOPHEN [Concomitant]
     Active Substance: ACETAMINOPHEN
  19. ASPIRIN [Concomitant]
     Active Substance: ASPIRIN
  20. MIRAPEX [Concomitant]
     Active Substance: PRAMIPEXOLE DIHYDROCHLORIDE
     Dates: start: 20200811
  21. TYLENOL [Concomitant]
     Active Substance: ACETAMINOPHEN
     Dates: start: 20220107
  22. RENVELA [Concomitant]
     Active Substance: SEVELAMER CARBONATE
     Dates: start: 20210115
  23. COLACE [Concomitant]
     Active Substance: DOCUSATE SODIUM
     Dates: start: 20210115
  24. ZOFRAN [Concomitant]
     Active Substance: ONDANSETRON HYDROCHLORIDE
     Dates: start: 20220107
  25. NEURONTIN [Concomitant]
     Active Substance: GABAPENTIN
     Dates: start: 20211129
  26. ZEBETA [Concomitant]
     Active Substance: BISOPROLOL FUMARATE
     Dates: start: 20200814
  27. HYDRALAZINE [Concomitant]
     Active Substance: HYDRALAZINE HYDROCHLORIDE
     Dates: start: 20200320
  28. IMDUR [Concomitant]
     Active Substance: ISOSORBIDE MONONITRATE
     Dates: start: 20200320
  29. CARAFATE [Concomitant]
     Active Substance: SUCRALFATE
     Dates: start: 20210722
  30. MIRALAX [Concomitant]
     Active Substance: POLYETHYLENE GLYCOL 3350
     Dates: start: 20210722
  31. CLONIDINE [Concomitant]
     Active Substance: CLONIDINE
     Dates: start: 20210722
  32. ZYLOPRIM [Concomitant]
     Active Substance: ALLOPURINOL
     Dates: start: 20190509
  33. BUMEX [Concomitant]
     Active Substance: BUMETANIDE
     Dates: start: 20190509
  34. ZEMPLAR [Concomitant]
     Active Substance: PARICALCITOL
     Dates: start: 20190509
  35. NOVOLOG [Concomitant]
     Active Substance: INSULIN ASPART
  36. VITAMINS [Concomitant]
     Active Substance: VITAMINS
     Dates: start: 20200627
  37. SYMBICORT [Concomitant]
     Active Substance: BUDESONIDE\FORMOTEROL FUMARATE DIHYDRATE
     Dates: start: 20200627
  38. NITROGLYCERIN [Concomitant]
     Active Substance: NITROGLYCERIN
  39. DEXTROSE [Concomitant]
     Active Substance: DEXTROSE
     Dates: start: 20201001
  40. NIFEDIPINE [Concomitant]
     Active Substance: NIFEDIPINE
     Dates: start: 20210128
  41. MAGNESIUM OXIDE [Concomitant]
     Active Substance: MAGNESIUM OXIDE
     Dates: start: 20210128
  42. HYDROCODONE BITARTRATE/PHENYLEPHRINE HYDROCHLORIDE/AMMONIUM CHLORIDE/M [Concomitant]
     Dates: start: 20210128
  43. HEPARIN [Concomitant]
     Active Substance: HEPARIN SODIUM
     Dates: start: 20210128
  44. BUMETANIDE [Concomitant]
     Active Substance: BUMETANIDE
     Dates: start: 20210128
  45. CODEINE [Concomitant]
     Active Substance: CODEINE
     Dates: start: 20100905
  46. METRONIDAZOLE [Concomitant]
     Active Substance: METRONIDAZOLE
     Dates: start: 20100905
  47. BACLOFEN [Concomitant]
     Active Substance: BACLOFEN
     Dates: start: 20100905
  48. LANTUS [Concomitant]
     Active Substance: INSULIN GLARGINE
     Dates: start: 20170920
  49. DOXAZOSIN [Concomitant]
     Active Substance: DOXAZOSIN MESYLATE
     Dates: start: 20171120
  50. COUMADIN [Concomitant]
     Active Substance: WARFARIN SODIUM
     Dates: start: 20170421

REACTIONS (5)
  - Chronic kidney disease [Unknown]
  - Acute kidney injury [Unknown]
  - End stage renal disease [Unknown]
  - Hyperparathyroidism secondary [Unknown]
  - Nephrogenic anaemia [Unknown]

NARRATIVE: CASE EVENT DATE: 20180101
